FAERS Safety Report 4506758-5 (Version None)
Quarter: 2004Q4

REPORT INFORMATION
  Report Type: 
  Country: None (occurrence: None)
  Receive Date: 20041122
  Receipt Date: 20041108
  Transmission Date: 20050328
  Serious: Yes (Other)
  Sender: FDA-Public Use
  Company Number: US-ROCHE-385841

PATIENT
  Age: 43 Year
  Sex: Male

DRUGS (6)
  1. PEGASYS [Suspect]
     Indication: HEPATITIS C
     Route: 058
     Dates: start: 20040315, end: 20041015
  2. PEGASYS [Suspect]
     Route: 058
  3. PEGASYS [Suspect]
     Route: 058
     Dates: start: 20041015
  4. COPEGUS [Suspect]
     Indication: HEPATITIS C
     Dosage: 3AM AND 2PM WAS REPORTED.
     Route: 048
     Dates: start: 20040315, end: 20041015
  5. COPEGUS [Suspect]
     Route: 048
     Dates: start: 20041015
  6. NAPROXEN [Suspect]
     Indication: MYALGIA
     Route: 065

REACTIONS (5)
  - DEAFNESS [None]
  - DEAFNESS UNILATERAL [None]
  - IRRITABILITY [None]
  - MYALGIA [None]
  - TINNITUS [None]
